FAERS Safety Report 8424557-9 (Version None)
Quarter: 2012Q2

REPORT INFORMATION
  Report Type: 
  Country: None (occurrence: None)
  Receive Date: 20120611
  Receipt Date: 20120607
  Transmission Date: 20120825
  Serious: Yes (Hospitalization)
  Sender: FDA-Public Use
  Company Number: CA-AMGEN-CANSP2012035571

PATIENT
  Sex: Female
  Weight: 58 kg

DRUGS (3)
  1. CYTOXAN [Concomitant]
     Indication: BREAST CANCER
     Dosage: 984 UNIT, UNK
     Route: 042
     Dates: start: 20120510, end: 20120516
  2. TAXOTERE [Concomitant]
     Indication: BREAST CANCER
     Dosage: 127 UNIT, UNK
     Route: 042
     Dates: start: 20120510, end: 20120516
  3. NEULASTA [Suspect]
     Indication: CHEMOTHERAPY
     Dosage: 6 MG, UNK
     Route: 058
     Dates: start: 20120511

REACTIONS (1)
  - FEBRILE NEUTROPENIA [None]
